FAERS Safety Report 15604222 (Version 5)
Quarter: 2019Q4

REPORT INFORMATION
  Report Type: Spontaneous
  Country: US (occurrence: US)
  Receive Date: 20181110
  Receipt Date: 20191120
  Transmission Date: 20200122
  Serious: Yes (Other)
  Sender: FDA-Public Use
  Company Number: US-JNJFOC-20181040792

PATIENT
  Sex: Male

DRUGS (4)
  1. ZYTIGA [Suspect]
     Active Substance: ABIRATERONE ACETATE
     Indication: PRODUCT USED FOR UNKNOWN INDICATION
     Route: 048
     Dates: start: 20180820
  2. LEUPRORELIN [Concomitant]
     Active Substance: LEUPROLIDE ACETATE
  3. METPROLOL [Concomitant]
     Active Substance: METOPROLOL
     Indication: HYPERTENSION
     Route: 065
  4. AMLODIPINE [Concomitant]
     Active Substance: AMLODIPINE BESYLATE
     Indication: HYPERTENSION
     Route: 065

REACTIONS (14)
  - Erectile dysfunction [Not Recovered/Not Resolved]
  - Abnormal dreams [Not Recovered/Not Resolved]
  - Cellulitis [Unknown]
  - Insomnia [Unknown]
  - Alopecia [Unknown]
  - Depression [Unknown]
  - Hair growth abnormal [Not Recovered/Not Resolved]
  - Gynaecomastia [Unknown]
  - Muscle hypertrophy [Not Recovered/Not Resolved]
  - Headache [Not Recovered/Not Resolved]
  - Weight decreased [Not Recovered/Not Resolved]
  - Affect lability [Unknown]
  - Rectal haemorrhage [Not Recovered/Not Resolved]
  - Testicular atrophy [Not Recovered/Not Resolved]
